FAERS Safety Report 9245469 (Version 2)
Quarter: 2013Q2

REPORT INFORMATION
  Report Type: Spontaneous
  Country: IT (occurrence: IT)
  Receive Date: 20130422
  Receipt Date: 20130531
  Transmission Date: 20140414
  Serious: Yes (Hospitalization, Other)
  Sender: FDA-Public Use
  Company Number: IT-BRISTOL-MYERS SQUIBB COMPANY-18797332

PATIENT
  Age: 65 Year
  Sex: Male

DRUGS (8)
  1. COUMADIN TABS 5 MG [Suspect]
     Indication: ATRIAL FIBRILLATION
     Route: 048
     Dates: start: 20120401, end: 20130410
  2. PARACETAMOL TABS 500 MG [Interacting]
     Indication: PAIN
     Route: 048
     Dates: start: 20130408, end: 20130410
  3. ALLOPURINOL [Concomitant]
  4. LASIX [Concomitant]
     Dosage: TABLET
  5. KANRENOL [Concomitant]
     Dosage: TABLET
  6. SPIRIVA [Concomitant]
  7. TAREG [Concomitant]
     Dosage: CAPS
  8. CORDARONE [Concomitant]
     Dosage: TABLET

REACTIONS (2)
  - Epistaxis [Recovering/Resolving]
  - Drug interaction [Unknown]
